FAERS Safety Report 17806910 (Version 3)
Quarter: 2022Q1

REPORT INFORMATION
  Report Type: Spontaneous
  Country: US (occurrence: US)
  Receive Date: 20200520
  Receipt Date: 20220105
  Transmission Date: 20220423
  Serious: No
  Sender: FDA-Public Use
  Company Number: US-PFIZER INC-2020143831

PATIENT
  Age: 72 Year
  Sex: Female

DRUGS (1)
  1. IBRANCE [Suspect]
     Active Substance: PALBOCICLIB
     Indication: Breast cancer female
     Dosage: 75MG 1X/DAY (WITH FOOD FOR 14 DAYS ON AND 7 DAYS OFF)
     Route: 048

REACTIONS (3)
  - Bradyphrenia [Unknown]
  - Fatigue [Unknown]
  - Feeling abnormal [Unknown]
